FAERS Safety Report 16985248 (Version 1)
Quarter: 2019Q4

REPORT INFORMATION
  Report Type: Spontaneous
  Country: ES (occurrence: ES)
  Receive Date: 20191101
  Receipt Date: 20191101
  Transmission Date: 20200122
  Serious: Yes (Other)
  Sender: FDA-Public Use
  Company Number: ES-PFIZER INC-2019467013

PATIENT
  Age: 43 Year
  Sex: Female

DRUGS (1)
  1. IBRANCE [Suspect]
     Active Substance: PALBOCICLIB
     Indication: BREAST NEOPLASM
     Dosage: 125 MG, 1X/DAY
     Route: 048
     Dates: start: 20181016, end: 20190701

REACTIONS (1)
  - Pseudocirrhosis [Not Recovered/Not Resolved]

NARRATIVE: CASE EVENT DATE: 20190701
